FAERS Safety Report 8903598 (Version 1)
Quarter: 2012Q4

REPORT INFORMATION
  Report Type: 
  Country: US (occurrence: US)
  Receive Date: 20121113
  Receipt Date: 20121113
  Transmission Date: 20130627
  Serious: Yes (Other)
  Sender: FDA-Public Use
  Company Number: US-PFIZER INC-2012280856

PATIENT
  Sex: Female

DRUGS (1)
  1. LYRICA [Suspect]
     Indication: FIBROMYALGIA
     Dosage: 100 mg, 2x/day

REACTIONS (8)
  - Amnesia [Unknown]
  - Nausea [Unknown]
  - Vomiting [Unknown]
  - Feeling abnormal [Unknown]
  - Insomnia [Unknown]
  - Dysgeusia [Unknown]
  - Feeling cold [Unknown]
  - Gastrooesophageal reflux disease [Unknown]
